FAERS Safety Report 8870258 (Version 1)
Quarter: 2012Q4

REPORT INFORMATION
  Report Type: 
  Country: US (occurrence: US)
  Receive Date: 20121026
  Receipt Date: 20121026
  Transmission Date: 20130627
  Serious: No
  Sender: FDA-Public Use
  Company Number: US-AMGEN-USASP2012043462

PATIENT
  Age: 60 Year
  Sex: Female
  Weight: 82.99 kg

DRUGS (5)
  1. ENBREL [Suspect]
     Indication: PRODUCT USED FOR UNKNOWN INDICATION
     Dosage: 50 mg, qwk
     Route: 058
  2. SERTRALIN                          /01011401/ [Concomitant]
     Dosage: 50 mg, UNK
  3. NAMENDA [Concomitant]
     Dosage: 10 mg, UNK
  4. LEVOXYL [Concomitant]
     Dosage: 200 mug, UNK
  5. EXELON                             /01383201/ [Concomitant]

REACTIONS (2)
  - Diarrhoea [Unknown]
  - Nail infection [Unknown]
